FAERS Safety Report 13049625 (Version 8)
Quarter: 2018Q2

REPORT INFORMATION
  Report Type: Report from Study
  Country: BR (occurrence: BR)
  Receive Date: 20161221
  Receipt Date: 20180413
  Transmission Date: 20180711
  Serious: Yes (Other)
  Sender: FDA-Public Use
  Company Number: PHHY2016BR081860

PATIENT
  Age: 62 Year
  Sex: Female
  Weight: 94 kg

DRUGS (4)
  1. GILENYA [Suspect]
     Active Substance: FINGOLIMOD HYDROCHLORIDE
     Indication: MULTIPLE SCLEROSIS
     Dosage: 0.5 MG, QD
     Route: 048
     Dates: start: 20160608
  2. FINGOLIMOD HYDROCHLORIDE [Suspect]
     Active Substance: FINGOLIMOD HYDROCHLORIDE
     Indication: PRODUCT USED FOR UNKNOWN INDICATION
     Dosage: UNK
     Route: 065
     Dates: start: 201705, end: 201706
  3. GILENYA [Suspect]
     Active Substance: FINGOLIMOD HYDROCHLORIDE
     Dosage: 0.5 MG, QOD
     Route: 048
     Dates: start: 201607
  4. GILENYA [Suspect]
     Active Substance: FINGOLIMOD HYDROCHLORIDE
     Dosage: 0.5 MG, QD
     Route: 048
     Dates: end: 2017

REACTIONS (29)
  - Dyspepsia [Recovering/Resolving]
  - Malaise [Recovering/Resolving]
  - Syncope [Not Recovered/Not Resolved]
  - Stress [Recovering/Resolving]
  - Malaise [Recovered/Resolved]
  - Dysentery [Recovering/Resolving]
  - Nausea [Not Recovered/Not Resolved]
  - Peripheral swelling [Recovering/Resolving]
  - Diarrhoea [Recovered/Resolved]
  - Gait inability [Unknown]
  - Fall [Recovering/Resolving]
  - Face injury [Recovering/Resolving]
  - Retching [Recovering/Resolving]
  - Pain [Recovered/Resolved]
  - Abdominal discomfort [Recovering/Resolving]
  - Hypertension [Recovering/Resolving]
  - Vomiting [Recovered/Resolved]
  - Headache [Recovering/Resolving]
  - Abdominal discomfort [Recovered/Resolved]
  - Amnesia [Unknown]
  - Diarrhoea [Recovering/Resolving]
  - Prescribed underdose [Unknown]
  - Abdominal distension [Recovered/Resolved]
  - Hyperhidrosis [Recovered/Resolved]
  - Vomiting [Recovered/Resolved]
  - Nausea [Recovered/Resolved]
  - Abdominal pain [Recovered/Resolved]
  - Gastrointestinal disorder [Recovered/Resolved]
  - Hyperhidrosis [Not Recovered/Not Resolved]

NARRATIVE: CASE EVENT DATE: 20160603
